FAERS Safety Report 5106916-5 (Version None)
Quarter: 2006Q3

REPORT INFORMATION
  Report Type: 
  Country: None (occurrence: None)
  Receive Date: 20060913
  Receipt Date: 20060829
  Transmission Date: 20061208
  Serious: Yes (Other)
  Sender: FDA-Public Use
  Company Number: US-2006-022534

PATIENT
  Age: 59 Year
  Sex: Female
  Weight: 74.8 kg

DRUGS (14)
  1. BETASERON [Suspect]
     Indication: RELAPSING-REMITTING MULTIPLE SCLEROSIS
     Dosage: 8 MIU, EVERY 2D, SUBCUTANEOUS
     Route: 058
     Dates: start: 20060715
  2. ATENOLOL [Concomitant]
  3. QUINAPRIL [Concomitant]
  4. TRIAMCINOLONE HEXACETONIDE [Concomitant]
  5. PRILOSEC [Concomitant]
  6. BACLOFEN [Concomitant]
  7. PAXIL [Concomitant]
  8. TRAZODONE HCL [Concomitant]
  9. NEURONTIN [Concomitant]
  10. PROVIGIL [Concomitant]
  11. MICRO-K [Concomitant]
  12. DETROL [Concomitant]
  13. ZOSYN [Concomitant]
  14. AUGMENTIN '125' [Concomitant]

REACTIONS (12)
  - ABSCESS INTESTINAL [None]
  - ARTHROPOD BITE [None]
  - BLADDER SPASM [None]
  - DIVERTICULITIS [None]
  - LOCALISED INFECTION [None]
  - MALAISE [None]
  - MASS [None]
  - MICTURITION DISORDER [None]
  - OVARIAN CYST [None]
  - URINARY INCONTINENCE [None]
  - URINARY TRACT DISORDER [None]
  - WHITE BLOOD CELLS URINE POSITIVE [None]
